FAERS Safety Report 14100305 (Version 9)
Quarter: 2017Q4

REPORT INFORMATION
  Report Type: Spontaneous
  Country: CA (occurrence: CA)
  Receive Date: 20171017
  Receipt Date: 20171212
  Transmission Date: 20180321
  Serious: Yes (Hospitalization, Disabling)
  Sender: FDA-Public Use
  Company Number: CA-BIOMARINAP-CA-2017-115748

PATIENT
  Age: 12 Year
  Sex: Female
  Weight: 29.2 kg

DRUGS (16)
  1. ALDURAZYME [Suspect]
     Active Substance: LARONIDASE
     Indication: MUCOPOLYSACCHARIDOSIS I
     Dosage: 20.3 MG, QW
     Route: 041
     Dates: start: 20110509
  2. SYMBICORT [Concomitant]
     Active Substance: BUDESONIDE\FORMOTEROL FUMARATE DIHYDRATE
     Indication: PROPHYLAXIS
     Dosage: UNK
     Dates: start: 20170622
  3. DIPHENHYDRAMINE. [Concomitant]
     Active Substance: DIPHENHYDRAMINE
     Indication: PREMEDICATION
  4. TYLENOL [Concomitant]
     Active Substance: ACETAMINOPHEN
     Indication: PREMEDICATION
  5. BENADRYL [Concomitant]
     Active Substance: DIPHENHYDRAMINE HYDROCHLORIDE
     Indication: PREMEDICATION
  6. ALDURAZYME [Suspect]
     Active Substance: LARONIDASE
     Dosage: 0.69 MG/KG, QW
     Route: 041
     Dates: start: 2017
  7. ALDURAZYME [Suspect]
     Active Substance: LARONIDASE
     Dosage: UNK
     Route: 041
  8. ALDURAZYME [Suspect]
     Active Substance: LARONIDASE
     Dosage: 0.96 MG/KG, QW
     Route: 041
     Dates: end: 20170922
  9. EMLA [Concomitant]
     Active Substance: LIDOCAINE\PRILOCAINE
     Indication: PREMEDICATION
  10. ACETAMINOPHEN. [Concomitant]
     Active Substance: ACETAMINOPHEN
     Indication: PRODUCT USED FOR UNKNOWN INDICATION
  11. COUMADIN [Concomitant]
     Active Substance: WARFARIN SODIUM
     Indication: PRODUCT USED FOR UNKNOWN INDICATION
  12. ASA [Concomitant]
     Active Substance: ASPIRIN
     Indication: PRODUCT USED FOR UNKNOWN INDICATION
     Dosage: UNK
     Dates: start: 201710
  13. LASIX [Concomitant]
     Active Substance: FUROSEMIDE
     Indication: PRODUCT USED FOR UNKNOWN INDICATION
     Dosage: UNK
     Dates: start: 201710
  14. IBUPROFEN. [Concomitant]
     Active Substance: IBUPROFEN
     Indication: PREMEDICATION
  15. DIAMOX                             /00016901/ [Concomitant]
     Active Substance: ACETAZOLAMIDE
     Indication: PRODUCT USED FOR UNKNOWN INDICATION
  16. ALDURAZYME [Suspect]
     Active Substance: LARONIDASE
     Dosage: 0.52 MG/KG, QW
     Route: 041
     Dates: start: 20130310

REACTIONS (14)
  - Optic ischaemic neuropathy [Not Recovered/Not Resolved]
  - Bone disorder [Unknown]
  - Retinal disorder [Not Recovered/Not Resolved]
  - Off label use [Unknown]
  - Aortic valve stenosis [Recovering/Resolving]
  - Papilloedema [Not Recovered/Not Resolved]
  - Vision blurred [Not Recovered/Not Resolved]
  - Musculoskeletal discomfort [Recovering/Resolving]
  - Visual impairment [Not Recovered/Not Resolved]
  - Fatigue [Not Recovered/Not Resolved]
  - Pain [Recovering/Resolving]
  - Unevaluable event [Unknown]
  - Disease progression [Recovering/Resolving]
  - Back pain [Recovering/Resolving]
